FAERS Safety Report 10850637 (Version 1)
Quarter: 2015Q1

REPORT INFORMATION
  Report Type: Spontaneous
  Country: US (occurrence: US)
  Receive Date: 20150222
  Receipt Date: 20150222
  Transmission Date: 20150721
  Serious: No
  Sender: FDA-Public Use
  Company Number: US-ALLERGAN-1403117US

PATIENT
  Sex: Female

DRUGS (4)
  1. BOTOX [Suspect]
     Active Substance: ONABOTULINUMTOXINA
     Indication: MICTURITION URGENCY
     Dosage: 100 UNITS, SINGLE
     Dates: start: 20131230, end: 20131230
  2. ELMIRON [Concomitant]
     Active Substance: PENTOSAN POLYSULFATE SODIUM
     Indication: PRODUCT USED FOR UNKNOWN INDICATION
     Dosage: UNK
  3. AMITRIPTILINE [Concomitant]
     Indication: PRODUCT USED FOR UNKNOWN INDICATION
  4. VESICARE [Concomitant]
     Active Substance: SOLIFENACIN SUCCINATE
     Indication: PRODUCT USED FOR UNKNOWN INDICATION
     Dosage: 5 MG, UNK

REACTIONS (1)
  - Residual urine volume increased [Recovered/Resolved]

NARRATIVE: CASE EVENT DATE: 20140110
